FAERS Safety Report 20360047 (Version 1)
Quarter: 2022Q1

REPORT INFORMATION
  Report Type: Report from Study
  Country: IT (occurrence: IT)
  Receive Date: 20220121
  Receipt Date: 20220121
  Transmission Date: 20220424
  Serious: Yes (Other)
  Sender: FDA-Public Use
  Company Number: IT-SUN PHARMACEUTICAL INDUSTRIES LTD-2022R1-323942

PATIENT
  Sex: Female

DRUGS (6)
  1. TEMOZOLOMIDE [Suspect]
     Active Substance: TEMOZOLOMIDE
     Indication: Glioma
     Dosage: 60 MILLIGRAM/SQ. METER, 8 CYCLES
     Route: 065
  2. CARBOPLATIN [Suspect]
     Active Substance: CARBOPLATIN
     Indication: Glioma
     Dosage: 2,100 MG/M2 CUMULATIVE DOSE
     Route: 065
  3. CISPLATIN [Suspect]
     Active Substance: CISPLATIN
     Indication: Glioma
     Dosage: 120 MILLIGRAM/SQ. METER, 1,000 MG/M2 CUMULATIVE DOSE
     Route: 065
  4. VINCRISTINE [Suspect]
     Active Substance: VINCRISTINE
     Indication: Glioma
     Dosage: UNK
     Route: 065
  5. ETOPOSIDE [Suspect]
     Active Substance: ETOPOSIDE
     Indication: Glioma
     Dosage: 450 MILLIGRAM/SQ. METER, 10 CYCLES
     Route: 065
  6. LOMUSTINE [Suspect]
     Active Substance: LOMUSTINE
     Indication: Glioma
     Dosage: UNK
     Route: 065

REACTIONS (1)
  - Hypoacusis [Unknown]
